FAERS Safety Report 13759558 (Version 1)
Quarter: 2017Q3

REPORT INFORMATION
  Report Type: Spontaneous
  Country: US (occurrence: US)
  Receive Date: 20170717
  Receipt Date: 20170717
  Transmission Date: 20171127
  Serious: Yes (Other)
  Sender: FDA-Public Use
  Company Number: US-PFIZER INC-2015436829

PATIENT
  Age: 48 Year
  Sex: Female

DRUGS (2)
  1. PACLITAXEL. [Suspect]
     Active Substance: PACLITAXEL
     Dosage: DOSE REDUCED BY 20%
  2. PACLITAXEL. [Suspect]
     Active Substance: PACLITAXEL
     Indication: BREAST CANCER STAGE IV
     Dosage: 150 MG/M2, CYCLIC (WEEKLY)ON DAYS 1, 8, AND 15 OF A 28 DAY CYCLE (SIX DOSES)
     Route: 042

REACTIONS (2)
  - Periarticular thenar erythema with onycholysis [Unknown]
  - Fatigue [Unknown]
